FAERS Safety Report 9620739 (Version 2)
Quarter: 2014Q1

REPORT INFORMATION
  Report Type: Spontaneous
  Country: US (occurrence: US)
  Receive Date: 20131015
  Receipt Date: 20140210
  Transmission Date: 20141002
  Serious: Yes (Hospitalization)
  Sender: FDA-Public Use
  Company Number: US-BIOGENIDEC-2013BI098010

PATIENT
  Age: 44 Year
  Sex: Female

DRUGS (1)
  1. TECFIDERA [Suspect]
     Indication: MULTIPLE SCLEROSIS
     Route: 048
     Dates: start: 20130822, end: 20130903

REACTIONS (10)
  - Jaundice [Unknown]
  - Hepatic enzyme increased [Unknown]
  - Lethargy [Unknown]
  - Pyrexia [Unknown]
  - Influenza like illness [Unknown]
  - Abdominal pain lower [Unknown]
  - Nausea [Unknown]
  - Fatigue [Unknown]
  - Gait disturbance [Unknown]
  - Musculoskeletal disorder [Unknown]
